FAERS Safety Report 17395810 (Version 1)
Quarter: 2020Q1

REPORT INFORMATION
  Report Type: Spontaneous
  Country: IR (occurrence: IR)
  Receive Date: 20200210
  Receipt Date: 20200210
  Transmission Date: 20200409
  Serious: Yes (Other)
  Sender: FDA-Public Use
  Company Number: IR-PFIZER INC-2020044007

PATIENT
  Age: 22 Year
  Sex: Female

DRUGS (13)
  1. LEVOFLOXACIN. [Concomitant]
     Active Substance: LEVOFLOXACIN
     Indication: INFECTION PROPHYLAXIS
     Dosage: UNK
     Dates: start: 2019
  2. CALCIUM CARBONATE W/VITAMIN D [CALCIUM CARBONATE;COLECALCIFEROL] [Concomitant]
     Active Substance: CALCIUM CARBONATE\CHOLECALCIFEROL
     Dosage: UNK
     Dates: start: 2019
  3. CYTARABINE. [Suspect]
     Active Substance: CYTARABINE
     Dosage: 1500 MG, 2X/DAY (1 G/M2 FOR THREE CONSECUTIVE DAYS 3,4, AND 5) EVERY 12 H
     Route: 042
     Dates: start: 2019
  4. FLUCONAZOLE. [Concomitant]
     Active Substance: FLUCONAZOLE
     Indication: INFECTION PROPHYLAXIS
     Dosage: UNK
     Dates: start: 2019
  5. GRANISETRONE [Concomitant]
     Dosage: UNK
     Dates: start: 2019
  6. APREPITANT. [Concomitant]
     Active Substance: APREPITANT
     Dosage: UNK
     Dates: start: 2019
  7. CYTARABINE. [Suspect]
     Active Substance: CYTARABINE
     Indication: ACUTE MYELOID LEUKAEMIA
     Dosage: UNK, CYCLIC (INDUCTION TREATMENT WAS 7+3 REGIMEN)
     Route: 042
     Dates: start: 2019
  8. CYTARABINE. [Suspect]
     Active Substance: CYTARABINE
     Dosage: 4500 MG, 2X/DAY (3 G/M2) TWICE A DAY ON DAYS 1, 3 AND 5 (4500 MG DILUTED IN 1000 ML N/S)
     Route: 042
     Dates: start: 2019
  9. ACYCLOVIR [ACICLOVIR SODIUM] [Concomitant]
     Active Substance: ACYCLOVIR
     Indication: INFECTION PROPHYLAXIS
     Dosage: UNK
     Dates: start: 2019
  10. CHLORPHENIRAMINE MALEATE. [Concomitant]
     Active Substance: CHLORPHENIRAMINE MALEATE
     Dosage: UNK
     Dates: start: 2019
  11. IDARUBICINE [Concomitant]
     Active Substance: IDARUBICIN
     Indication: ACUTE MYELOID LEUKAEMIA
     Dosage: UNK, CYCLIC (INDUCTION TREATMENT WAS 7+3 REGIMEN)
     Dates: start: 2019
  12. PANTOPRAZOLE [Concomitant]
     Active Substance: PANTOPRAZOLE
     Dosage: UNK
     Dates: start: 2019
  13. BETAMETHASONE. [Concomitant]
     Active Substance: BETAMETHASONE
     Dosage: UNK
     Dates: start: 2019

REACTIONS (1)
  - Neurotoxicity [Recovered/Resolved]

NARRATIVE: CASE EVENT DATE: 2019
